FAERS Safety Report 23211481 (Version 1)
Quarter: 2023Q4

REPORT INFORMATION
  Report Type: Spontaneous
  Country: GR (occurrence: GR)
  Receive Date: 20231121
  Receipt Date: 20231121
  Transmission Date: 20240109
  Serious: Yes (Other)
  Sender: FDA-Public Use
  Company Number: GR-PFIZER INC-PV202300188211

PATIENT
  Sex: Male

DRUGS (1)
  1. PAXLOVID [Suspect]
     Active Substance: NIRMATRELVIR\RITONAVIR
     Indication: COVID-19 treatment
     Dosage: 3 DF (300 MG (2X150 MG) PAXLOVID 100 MG RITONAVIR), 2X/DAY (MORNING AND EVENING)
     Route: 048

REACTIONS (2)
  - Hypertension [Recovered/Resolved]
  - Disease recurrence [Recovered/Resolved]
